FAERS Safety Report 6073105-X (Version None)
Quarter: 2009Q1

REPORT INFORMATION
  Report Type: 
  Country: None (occurrence: None)
  Receive Date: 20090205
  Receipt Date: 20090202
  Transmission Date: 20090719
  Serious: Yes (Hospitalization)
  Sender: FDA-Public Use
  Company Number: 2009000235

PATIENT
  Age: 45 Year
  Sex: Female
  Weight: 61.3263 kg

DRUGS (13)
  1. ERLOTINIB (ERLOTINIB) (TABLET) (ERLOTINIB) [Suspect]
     Indication: NON-SMALL CELL LUNG CANCER
     Dosage: (150 MG,QD),ORAL
     Route: 047
     Dates: start: 20081201, end: 20081228
  2. SUNITINIB/ PLACEBO [Suspect]
     Indication: NON-SMALL CELL LUNG CANCER
     Dates: start: 20081201, end: 20081228
  3. HUMULIN N (INSULIN HUMAN) [Concomitant]
  4. HUMULIN R [Concomitant]
  5. PERINDOPRIL ERBUMINE [Concomitant]
  6. CETIRIZINE HCL [Concomitant]
  7. CRESTOR [Concomitant]
  8. ASPIRIN [Concomitant]
  9. PAROXETINE HCL [Concomitant]
  10. OMEPRAZOLE [Concomitant]
  11. METOPROLOL TARTRATE [Concomitant]
  12. BETAHISTINE (BETAHISTINE) [Concomitant]
  13. MAGNESIUM GLUCONATE (MAGNESIUM GLUCONATE) [Concomitant]

REACTIONS (5)
  - DIARRHOEA [None]
  - HYPOCALCAEMIA [None]
  - HYPOMAGNESAEMIA [None]
  - NAUSEA [None]
  - VOMITING [None]
